FAERS Safety Report 15977965 (Version 1)
Quarter: 2019Q1

REPORT INFORMATION
  Report Type: Report from Study
  Country: US (occurrence: US)
  Receive Date: 20190218
  Receipt Date: 20190218
  Transmission Date: 20190418
  Serious: Yes (Death)
  Sender: FDA-Public Use
  Company Number: US-BEH-2019099389

PATIENT
  Age: 64 Year
  Sex: Male

DRUGS (1)
  1. HAEMATE P [Suspect]
     Active Substance: ANTIHEMOPHILIC FACTOR HUMAN
     Indication: VON WILLEBRAND^S DISEASE
     Route: 065

REACTIONS (3)
  - Cerebrovascular accident [Fatal]
  - Cerebral haemorrhage [Fatal]
  - Seizure [Fatal]

NARRATIVE: CASE EVENT DATE: 201807
